FAERS Safety Report 24833382 (Version 1)
Quarter: 2025Q1

REPORT INFORMATION
  Report Type: Other
  Country: US (occurrence: US)
  Receive Date: 20250111
  Receipt Date: 20250111
  Transmission Date: 20250408
  Serious: Yes (Hospitalization, Other)
  Sender: CREEKWOOD PHARMACEUTICALS LLC
  Company Number: US-Creekwood Pharmaceuticals LLC-2168873

PATIENT
  Age: 23 Year
  Sex: Female

DRUGS (7)
  1. HYDROXYCHLOROQUINE SULFATE [Suspect]
     Active Substance: HYDROXYCHLOROQUINE SULFATE
     Indication: Systemic lupus erythematosus
  2. COLCHICINE [Concomitant]
     Active Substance: COLCHICINE
  3. LABETALOL [Concomitant]
     Active Substance: LABETALOL
  4. NIFEDIPINE [Concomitant]
     Active Substance: NIFEDIPINE
  5. LOSARTAN [Concomitant]
     Active Substance: LOSARTAN
  6. APIXABAN [Concomitant]
     Active Substance: APIXABAN
  7. MYCOPHENOLATE MOFETIL [Concomitant]
     Active Substance: MYCOPHENOLATE MOFETIL

REACTIONS (1)
  - Hypertrophic cardiomyopathy [Recovered/Resolved]
